FAERS Safety Report 9072404 (Version 1)
Quarter: 2013Q1

REPORT INFORMATION
  Report Type: Spontaneous
  Country: US (occurrence: CA)
  Receive Date: 20130129
  Receipt Date: 20130129
  Transmission Date: 20140127
  Serious: Yes (Death)
  Sender: FDA-Public Use
  Company Number: US-BAYER-2013-010064

PATIENT
  Sex: Female

DRUGS (1)
  1. ACETYLSALICYLIC ACID + PHENYLPROPANOLAMINE [Suspect]
     Indication: NASOPHARYNGITIS

REACTIONS (1)
  - Haemorrhagic stroke [Fatal]
